FAERS Safety Report 25611141 (Version 2)
Quarter: 2025Q3

REPORT INFORMATION
  Report Type: Spontaneous
  Country: GB (occurrence: GB)
  Receive Date: 20250728
  Receipt Date: 20250813
  Transmission Date: 20251021
  Serious: Yes (Disabling, Other)
  Sender: AUROBINDO
  Company Number: GB-MHRA-MED-202507151146427360-VTNPH

PATIENT
  Age: 18 Year
  Sex: Female
  Weight: 7 kg

DRUGS (1)
  1. MONTELUKAST [Suspect]
     Active Substance: MONTELUKAST
     Indication: Adverse drug reaction
     Route: 065
     Dates: start: 20241222

REACTIONS (9)
  - Hallucination [Recovering/Resolving]
  - Tearfulness [Recovering/Resolving]
  - Suicide threat [Recovering/Resolving]
  - Dysphemia [Recovering/Resolving]
  - Anger [Recovering/Resolving]
  - Cluster headache [Recovering/Resolving]
  - Anxiety [Recovering/Resolving]
  - Body dysmorphic disorder [Recovering/Resolving]
  - Frustration tolerance decreased [Recovering/Resolving]

NARRATIVE: CASE EVENT DATE: 20250101
